FAERS Safety Report 6990706-2 (Version None)
Quarter: 2010Q3

REPORT INFORMATION
  Report Type: 
  Country: None (occurrence: None)
  Receive Date: 20100916
  Receipt Date: 20100729
  Transmission Date: 20110219
  Serious: Yes (Other)
  Sender: FDA-Public Use
  Company Number: CO-PFIZER INC-2010024143

PATIENT
  Sex: Female

DRUGS (4)
  1. LYRICA [Suspect]
     Indication: NEUROPATHY PERIPHERAL
     Dosage: 75 MG, 1X/DAY
     Route: 048
     Dates: start: 20100205
  2. LYRICA [Suspect]
     Dosage: 300 MG, UNK
     Dates: start: 20100218, end: 20100219
  3. LYRICA [Suspect]
     Dosage: 75 MG, 2X/DAY
     Route: 048
     Dates: start: 20100201
  4. OMEPRAZOLE [Concomitant]
     Dosage: UNK

REACTIONS (5)
  - DIZZINESS [None]
  - DRUG DISPENSING ERROR [None]
  - HYPOAESTHESIA [None]
  - INCOHERENT [None]
  - MOTOR DYSFUNCTION [None]
